FAERS Safety Report 4844253-4 (Version None)
Quarter: 2005Q4

REPORT INFORMATION
  Report Type: 
  Country: None (occurrence: None)
  Receive Date: 20051202
  Receipt Date: 20050818
  Transmission Date: 20060501
  Serious: Yes (Hospitalization)
  Sender: FDA-Public Use
  Company Number: US-MERCK-0508USA03437

PATIENT
  Age: 58 Year
  Sex: Female
  Weight: 75 kg

DRUGS (12)
  1. VIOXX [Suspect]
     Indication: SCIATICA
     Route: 048
     Dates: start: 20020912, end: 20040803
  2. ESTRACE [Concomitant]
     Route: 065
     Dates: start: 19850101
  3. VERAPAMIL [Concomitant]
     Route: 065
     Dates: start: 19900101
  4. PROTONIX [Concomitant]
     Route: 065
  5. CALCIUM (UNSPECIFIED) [Concomitant]
     Route: 065
  6. VITAMINS (UNSPECIFIED) [Concomitant]
     Route: 065
  7. ALEVE [Concomitant]
     Route: 065
     Dates: start: 19760101
  8. TYLENOL [Concomitant]
     Route: 065
     Dates: start: 19900101
  9. IMITREX [Concomitant]
     Indication: MIGRAINE
     Route: 065
     Dates: start: 19900101, end: 20030101
  10. VICODIN [Concomitant]
     Route: 065
  11. FLEXERIL [Concomitant]
     Route: 065
  12. ZESTRIL [Concomitant]
     Route: 065

REACTIONS (24)
  - ANAEMIA [None]
  - ANXIETY DISORDER [None]
  - BLOOD SODIUM DECREASED [None]
  - BOWEL SOUNDS ABNORMAL [None]
  - CARDIAC MURMUR [None]
  - CEREBROVASCULAR ACCIDENT [None]
  - DEPRESSION [None]
  - DIARRHOEA [None]
  - GALLBLADDER DISORDER [None]
  - GASTROOESOPHAGEAL REFLUX DISEASE [None]
  - HEADACHE [None]
  - HYPERTENSION [None]
  - HYPONATRAEMIA [None]
  - ISCHAEMIC STROKE [None]
  - ISCHAEMIC ULCER [None]
  - KIDNEY INFECTION [None]
  - LACUNAR INFARCTION [None]
  - LOWER GASTROINTESTINAL HAEMORRHAGE [None]
  - MIGRAINE [None]
  - PREPYLORIC STENOSIS [None]
  - SENSATION OF HEAVINESS [None]
  - SUPRAVENTRICULAR TACHYCARDIA [None]
  - THYROID NEOPLASM [None]
  - WEIGHT DECREASED [None]
